FAERS Safety Report 12755273 (Version 1)
Quarter: 2016Q3

REPORT INFORMATION
  Report Type: Spontaneous
  Country: CA (occurrence: CA)
  Receive Date: 20160916
  Receipt Date: 20160916
  Transmission Date: 20161109
  Serious: Yes (Other)
  Sender: FDA-Public Use
  Company Number: PHHY2016CA124906

PATIENT
  Age: 74 Year
  Sex: Male

DRUGS (3)
  1. ROGITINE [Suspect]
     Active Substance: PHENTOLAMINE MESYLATE
     Indication: ERECTILE DYSFUNCTION
     Dosage: 0.01 MG/ML, UNK
     Route: 065
  2. ALPROSTADIL. [Suspect]
     Active Substance: ALPROSTADIL
     Indication: ERECTILE DYSFUNCTION
     Dosage: 0.01 MG/ML, UNK
     Route: 065
  3. PAPAVERINE HYDROCHLORIDE. [Suspect]
     Active Substance: PAPAVERINE HYDROCHLORIDE
     Indication: ERECTILE DYSFUNCTION
     Dosage: 18 MG, UNK
     Route: 065

REACTIONS (1)
  - Priapism [Unknown]
